FAERS Safety Report 14377425 (Version 2)
Quarter: 2018Q1

REPORT INFORMATION
  Report Type: Spontaneous
  Country: US (occurrence: US)
  Receive Date: 20180111
  Receipt Date: 20180129
  Transmission Date: 20180509
  Serious: Yes (Hospitalization, Other)
  Sender: FDA-Public Use
  Company Number: US-DSJP-DSU-2017-156728

PATIENT

DRUGS (1)
  1. BENICAR [Suspect]
     Active Substance: OLMESARTAN MEDOXOMIL
     Indication: HYPERTENSION
     Dosage: 20 MG, QD
     Route: 048
     Dates: start: 20040714, end: 20070719

REACTIONS (7)
  - Weight decreased [Unknown]
  - Abdominal pain [Unknown]
  - Gastrooesophageal reflux disease [None]
  - Nausea [Unknown]
  - Epigastric discomfort [Unknown]
  - Dyskinesia oesophageal [Unknown]
  - Abdominal distension [Unknown]

NARRATIVE: CASE EVENT DATE: 20050526
